FAERS Safety Report 7398828-1 (Version None)
Quarter: 2011Q2

REPORT INFORMATION
  Report Type: 
  Country: None (occurrence: None)
  Receive Date: 20110404
  Receipt Date: 20110404
  Transmission Date: 20111010
  Serious: Yes (Hospitalization)
  Sender: FDA-Public Use
  Company Number: None

PATIENT
  Age: 25 Year
  Sex: Female

DRUGS (5)
  1. ATIVAN [Concomitant]
  2. SEROQUEL [Suspect]
     Dosage: 300MG
     Dates: start: 20101109, end: 20101109
  3. DILAUDID [Concomitant]
  4. MORPHINE [Concomitant]
  5. ZOFRAN [Concomitant]

REACTIONS (8)
  - SOMNOLENCE [None]
  - GASTROINTESTINAL HAEMORRHAGE [None]
  - SEDATION [None]
  - UNRESPONSIVE TO STIMULI [None]
  - DEPRESSED LEVEL OF CONSCIOUSNESS [None]
  - DEPRESSION [None]
  - INCORRECT DOSE ADMINISTERED [None]
  - SUICIDAL IDEATION [None]
